FAERS Safety Report 7055424-3 (Version None)
Quarter: 2010Q4

REPORT INFORMATION
  Report Type: 
  Country: None (occurrence: None)
  Receive Date: 20101021
  Receipt Date: 20101012
  Transmission Date: 20110411
  Serious: Yes (Hospitalization)
  Sender: FDA-Public Use
  Company Number: US-ASTRAZENECA-2010SE33059

PATIENT
  Age: 39 Year
  Sex: Female

DRUGS (10)
  1. CRESTOR [Suspect]
     Indication: ARTERIOSCLEROSIS
     Route: 048
  2. PLAQUENIL [Concomitant]
  3. PREDNISONE [Concomitant]
  4. IMURAN [Concomitant]
  5. CALCIUM [Concomitant]
  6. PRENATE VITAMINS [Concomitant]
  7. IRON [Concomitant]
  8. ASPIRIN [Concomitant]
  9. LOTREL [Concomitant]
  10. FISH OIL [Concomitant]

REACTIONS (1)
  - MYOCARDIAL INFARCTION [None]
